FAERS Safety Report 12743410 (Version 1)
Quarter: 2016Q3

REPORT INFORMATION
  Report Type: Spontaneous
  Country: SE (occurrence: SE)
  Receive Date: 20160914
  Receipt Date: 20160914
  Transmission Date: 20161109
  Serious: Yes (Hospitalization)
  Sender: FDA-Public Use
  Company Number: SE-SA-2016SA167658

PATIENT
  Sex: Female

DRUGS (17)
  1. DERMOVAT [Concomitant]
     Active Substance: CLOBETASOL
  2. WARAN [Suspect]
     Active Substance: WARFARIN SODIUM
     Indication: ATRIAL FIBRILLATION
     Route: 065
  3. WARAN [Suspect]
     Active Substance: WARFARIN SODIUM
     Indication: ATRIAL FIBRILLATION
     Route: 065
  4. CLAFORAN [Suspect]
     Active Substance: CEFOTAXIME SODIUM
     Indication: URINARY TRACT INFECTION
     Route: 065
     Dates: start: 20160726, end: 20160803
  5. OVIXAN [Concomitant]
  6. ATORVASTATIN [Concomitant]
     Active Substance: ATORVASTATIN
  7. CANODERM [Concomitant]
  8. VAGIFEM [Concomitant]
     Active Substance: ESTRADIOL
     Route: 067
  9. LANTUS [Concomitant]
     Active Substance: INSULIN GLARGINE
  10. ARANESP [Concomitant]
     Active Substance: DARBEPOETIN ALFA
  11. AMLODIPINE [Concomitant]
     Active Substance: AMLODIPINE BESYLATE
  12. OMEPRAZOLE. [Concomitant]
     Active Substance: OMEPRAZOLE
  13. NOVORAPID [Concomitant]
     Active Substance: INSULIN ASPART
  14. AIROMIR [Concomitant]
     Active Substance: ALBUTEROL SULFATE
     Route: 055
  15. FUROSEMIDE. [Concomitant]
     Active Substance: FUROSEMIDE
  16. LEVAXIN [Concomitant]
     Active Substance: LEVOTHYROXINE SODIUM
  17. CANDESARSTAD [Concomitant]

REACTIONS (2)
  - Drug eruption [Unknown]
  - Haematuria [Recovered/Resolved]

NARRATIVE: CASE EVENT DATE: 2016
